FAERS Safety Report 18139840 (Version 1)
Quarter: 2020Q3

REPORT INFORMATION
  Report Type: Spontaneous
  Country: US (occurrence: US)
  Receive Date: 20200812
  Receipt Date: 20200812
  Transmission Date: 20201103
  Serious: No
  Sender: FDA-Public Use
  Company Number: None

PATIENT
  Sex: Female

DRUGS (7)
  1. FORTEO [Suspect]
     Active Substance: TERIPARATIDE
     Indication: PATHOLOGICAL FRACTURE
     Route: 058
     Dates: start: 20171012
  2. CYANOCOBALAM [Concomitant]
     Active Substance: CYANOCOBALAMIN
  3. SUMATRIPTAN. [Concomitant]
     Active Substance: SUMATRIPTAN
  4. AMOX/K [Concomitant]
  5. FORTEO [Suspect]
     Active Substance: TERIPARATIDE
     Indication: OSTEOPOROTIC FRACTURE
     Route: 058
     Dates: start: 20171012
  6. ROPINROLE [Concomitant]
     Active Substance: ROPINIROLE
  7. ONDANSETRON [Concomitant]
     Active Substance: ONDANSETRON

REACTIONS (4)
  - Cholecystectomy [None]
  - Therapy interrupted [None]
  - Insurance issue [None]
  - Sinus disorder [None]
